FAERS Safety Report 23309262 (Version 1)
Quarter: 2023Q4

REPORT INFORMATION
  Report Type: Spontaneous
  Country: AU (occurrence: AU)
  Receive Date: 20231218
  Receipt Date: 20231218
  Transmission Date: 20240109
  Serious: Yes (Other)
  Sender: FDA-Public Use
  Company Number: AU-002147023-NVSC2023AU255776

PATIENT
  Age: 69 Year

DRUGS (4)
  1. AZOPT [Suspect]
     Active Substance: BRINZOLAMIDE
     Indication: Glaucoma
     Dosage: 5 ML, BID  (1 % 5 ML)
     Route: 047
  2. AZOPT [Suspect]
     Active Substance: BRINZOLAMIDE
     Indication: Intraocular pressure increased
  3. ISOPTO CARPINE [Suspect]
     Active Substance: PILOCARPINE HYDROCHLORIDE
     Indication: Intraocular pressure increased
     Dosage: 15 ML  (1% 15 ML)
     Route: 065
  4. LATANOPROST\TIMOLOL MALEATE [Concomitant]
     Active Substance: LATANOPROST\TIMOLOL MALEATE
     Indication: Intraocular pressure increased
     Dosage: UNK, QD, AT NIGHT
     Route: 065

REACTIONS (5)
  - Visual field defect [Unknown]
  - Intraocular pressure increased [Unknown]
  - Eye pain [Recovering/Resolving]
  - Miosis [Unknown]
  - Vitreous floaters [Unknown]

NARRATIVE: CASE EVENT DATE: 20231101
